FAERS Safety Report 12207219 (Version 2)
Quarter: 2016Q2

REPORT INFORMATION
  Report Type: Spontaneous
  Country: GB (occurrence: GB)
  Receive Date: 20160324
  Receipt Date: 20160606
  Transmission Date: 20160815
  Serious: Yes (Death, Other)
  Sender: FDA-Public Use
  Company Number: GB-WATSON-2016-06158

PATIENT
  Age: 40 Year
  Sex: Female

DRUGS (7)
  1. SERTRALINE HYDROCHLORIDE (UNKNOWN) [Suspect]
     Active Substance: SERTRALINE HYDROCHLORIDE
     Indication: DEPRESSION
     Dosage: 150 MG, UNK
     Route: 065
  2. SERTRALINE HYDROCHLORIDE (UNKNOWN) [Suspect]
     Active Substance: SERTRALINE HYDROCHLORIDE
     Dosage: 25 MG, UNK
     Route: 065
     Dates: start: 20151208, end: 201601
  3. ARIPIPRAZOLE. [Concomitant]
     Active Substance: ARIPIPRAZOLE
     Indication: AFFECTIVE DISORDER
     Dosage: 15 MG, DAILY
     Route: 048
     Dates: start: 201508
  4. PARACETAMOL  (UNKNOWN) [Suspect]
     Active Substance: ACETAMINOPHEN
     Indication: PRODUCT USED FOR UNKNOWN INDICATION
     Dosage: UNK
     Route: 065
  5. SERTRALINE HYDROCHLORIDE (UNKNOWN) [Suspect]
     Active Substance: SERTRALINE HYDROCHLORIDE
     Dosage: 50 MG, DAILY
     Route: 048
     Dates: start: 20160214
  6. ZOPICLONE [Concomitant]
     Active Substance: ZOPICLONE
     Indication: INSOMNIA
     Dosage: 7.5 MG, QHS (OCCASSIONAL USE)
     Route: 048
  7. SERTRALINE HYDROCHLORIDE (UNKNOWN) [Suspect]
     Active Substance: SERTRALINE HYDROCHLORIDE
     Dosage: 50 MG, UNK
     Route: 065
     Dates: start: 201601, end: 20160205

REACTIONS (3)
  - Completed suicide [Fatal]
  - Suicide attempt [Unknown]
  - Intentional overdose [Unknown]

NARRATIVE: CASE EVENT DATE: 20160205
